FAERS Safety Report 8801462 (Version 2)
Quarter: 2015Q1

REPORT INFORMATION
  Report Type: Report from Study
  Country: US (occurrence: US)
  Receive Date: 20120921
  Receipt Date: 20150317
  Transmission Date: 20150721
  Serious: Yes (Death)
  Sender: FDA-Public Use
  Company Number: US-ROCHE-1102406

PATIENT
  Age: 58 Year
  Sex: Female

DRUGS (16)
  1. ABRAXANE [Concomitant]
     Active Substance: PACLITAXEL
  2. ACETAMINOPHEN. [Concomitant]
     Active Substance: ACETAMINOPHEN
     Route: 048
  3. PACLITAXEL. [Concomitant]
     Active Substance: PACLITAXEL
     Route: 042
  4. EPOETIN ALFA [Concomitant]
     Active Substance: ERYTHROPOIETIN
     Dosage: 40000
     Route: 065
  5. LISINOPRIL. [Concomitant]
     Active Substance: LISINOPRIL
  6. NORVASC [Concomitant]
     Active Substance: AMLODIPINE BESYLATE
  7. DIPHENHYDRAMINE [Concomitant]
     Active Substance: DIPHENHYDRAMINE
     Route: 042
  8. LORAZEPAM. [Concomitant]
     Active Substance: LORAZEPAM
     Route: 042
  9. PALONOSETRON [Concomitant]
     Active Substance: PALONOSETRON
     Route: 042
  10. AVASTIN [Suspect]
     Active Substance: BEVACIZUMAB
     Indication: BREAST CANCER
     Route: 065
     Dates: start: 20080602
  11. ALTEPLASE [Concomitant]
     Active Substance: ALTEPLASE
     Route: 042
  12. ZEBETA [Concomitant]
     Active Substance: BISOPROLOL FUMARATE
  13. NEULASTA [Suspect]
     Active Substance: PEGFILGRASTIM
     Indication: PRODUCT USED FOR UNKNOWN INDICATION
     Route: 065
  14. ZOLEDRONIC ACID [Concomitant]
     Active Substance: ZOLEDRONIC ACID
     Route: 065
  15. BENADRYL [Concomitant]
     Active Substance: DIPHENHYDRAMINE HYDROCHLORIDE
  16. ADVIL [Concomitant]
     Active Substance: IBUPROFEN

REACTIONS (25)
  - Dyspnoea [Unknown]
  - Neuropathy peripheral [Unknown]
  - Dysphonia [Unknown]
  - Disease progression [Unknown]
  - Depression [Unknown]
  - Abdominal distension [Unknown]
  - Cough [Unknown]
  - Dyspepsia [Unknown]
  - Headache [Unknown]
  - Blood pressure increased [Unknown]
  - Bone pain [Unknown]
  - Arthralgia [Unknown]
  - Fatigue [Unknown]
  - Chest pain [Unknown]
  - Pruritus [Unknown]
  - Pelvic discomfort [Unknown]
  - Constipation [Unknown]
  - Anxiety [Unknown]
  - Urinary retention [Unknown]
  - Death [Fatal]
  - Diarrhoea [Unknown]
  - Rash [Unknown]
  - White blood cell count increased [Unknown]
  - Dry skin [Unknown]
  - Sinus headache [Unknown]

NARRATIVE: CASE EVENT DATE: 200812
